FAERS Safety Report 20942626 (Version 1)
Quarter: 2022Q2

REPORT INFORMATION
  Report Type: Other
  Country: CA (occurrence: CA)
  Receive Date: 20220610
  Receipt Date: 20220610
  Transmission Date: 20220720
  Serious: Yes (Hospitalization)
  Sender: FDA-Public Use
  Company Number: CA-APOTEX-2022AP008786

PATIENT
  Sex: Female

DRUGS (1)
  1. DASATINIB [Suspect]
     Active Substance: DASATINIB
     Indication: Leukaemia
     Dosage: 50 MILLIGRAM, QD
     Route: 048
     Dates: start: 20200507

REACTIONS (1)
  - Hospitalisation [Unknown]
